FAERS Safety Report 17096270 (Version 1)
Quarter: 2019Q4

REPORT INFORMATION
  Report Type: Spontaneous
  Country: FR (occurrence: FR)
  Receive Date: 20191202
  Receipt Date: 20191202
  Transmission Date: 20200122
  Serious: Yes (Other)
  Sender: FDA-Public Use
  Company Number: FR-TEVA-2019-FR-1145006

PATIENT
  Age: 65 Year
  Sex: Male

DRUGS (3)
  1. OXYCONTIN [Concomitant]
     Active Substance: OXYCODONE HYDROCHLORIDE
     Indication: DRUG WITHDRAWAL MAINTENANCE THERAPY
     Dosage: AT THE DOSAGE OF 5 MG
     Route: 065
  2. PARACETAMOL [Concomitant]
     Active Substance: ACETAMINOPHEN
     Indication: DRUG WITHDRAWAL MAINTENANCE THERAPY
  3. EFFENTORA 100 MCG [Suspect]
     Active Substance: FENTANYL CITRATE
     Indication: CANCER PAIN
     Dosage: TWO TABLETS TAKEN IN THE MORNING AND IN THE EVENING
     Route: 065
     Dates: start: 201909, end: 20191122

REACTIONS (5)
  - Skin irritation [Unknown]
  - Ocular hyperaemia [Unknown]
  - Visual impairment [Unknown]
  - Retinal haemorrhage [Unknown]
  - Retinal detachment [Unknown]

NARRATIVE: CASE EVENT DATE: 201911
